FAERS Safety Report 8317003-7 (Version None)
Quarter: 2012Q2

REPORT INFORMATION
  Report Type: 
  Country: None (occurrence: None)
  Receive Date: 20120425
  Receipt Date: 20120416
  Transmission Date: 20120825
  Serious: Yes (Disabling)
  Sender: FDA-Public Use
  Company Number: 2012SP007960

PATIENT
  Age: 39 Year
  Sex: Male

DRUGS (1)
  1. NASONEX [Suspect]
     Indication: SINUS DISORDER
     Dates: start: 20120101

REACTIONS (2)
  - DRUG INEFFECTIVE [None]
  - VIITH NERVE PARALYSIS [None]
